FAERS Safety Report 10448506 (Version 1)
Quarter: 2014Q3

REPORT INFORMATION
  Report Type: Report from Study
  Country: US (occurrence: US)
  Receive Date: 20140911
  Receipt Date: 20140911
  Transmission Date: 20150326
  Serious: Yes (Other)
  Sender: FDA-Public Use
  Company Number: US-ALEXION PHARMACEUTICALS INC-A200901501

PATIENT

DRUGS (1)
  1. SOLIRIS [Suspect]
     Active Substance: ECULIZUMAB
     Indication: PAROXYSMAL NOCTURNAL HAEMOGLOBINURIA
     Dosage: UNK
     Route: 042
     Dates: start: 20090418

REACTIONS (13)
  - Hypersensitivity [Unknown]
  - Haemoglobin abnormal [Unknown]
  - Haemoglobinuria [Unknown]
  - Haptoglobin decreased [Unknown]
  - Fatigue [Unknown]
  - Abdominal pain [Unknown]
  - Inappropriate schedule of drug administration [Unknown]
  - Quality of life decreased [Unknown]
  - Dizziness [Unknown]
  - Dyspnoea [Unknown]
  - Blood lactate dehydrogenase increased [Unknown]
  - Headache [Unknown]
  - Blood pressure orthostatic [Unknown]
